FAERS Safety Report 9979269 (Version 1)
Quarter: 2014Q1

REPORT INFORMATION
  Report Type: Report from Study
  Country: US (occurrence: US)
  Receive Date: 20140306
  Receipt Date: 20140306
  Transmission Date: 20141002
  Serious: No
  Sender: FDA-Public Use
  Company Number: US-ABBVIE-13P-163-1173647-00

PATIENT
  Age: 67 Year
  Sex: Female

DRUGS (6)
  1. HUMIRA [Suspect]
     Indication: CROHN^S DISEASE
     Route: 058
     Dates: start: 20130924, end: 201310
  2. HUMIRA [Suspect]
     Route: 058
     Dates: start: 20131123
  3. ANTIBIOTICS [Suspect]
     Indication: PRODUCT USED FOR UNKNOWN INDICATION
  4. COUMADIN [Concomitant]
     Indication: ANTIPHOSPHOLIPID SYNDROME
     Dosage: 10 MG FOR 3 DAYS AND THEN 7.5 MG FOR 4 DAYS
  5. IRON [Concomitant]
     Indication: MINERAL SUPPLEMENTATION
  6. VITAMIN D [Concomitant]
     Indication: VITAMIN SUPPLEMENTATION

REACTIONS (5)
  - Urinary tract infection [Unknown]
  - Nausea [Unknown]
  - Joint stiffness [Not Recovered/Not Resolved]
  - Arthralgia [Not Recovered/Not Resolved]
  - Injection site pain [Unknown]
